FAERS Safety Report 4805284-3 (Version None)
Quarter: 2005Q4

REPORT INFORMATION
  Report Type: 
  Country: None (occurrence: None)
  Receive Date: 20051017
  Receipt Date: 20051003
  Transmission Date: 20060501
  Serious: Yes (Other)
  Sender: FDA-Public Use
  Company Number: 2005136108

PATIENT
  Age: 60 Year
  Sex: Female
  Weight: 61.2356 kg

DRUGS (1)
  1. SUDAFED 12 HOUR [Suspect]
     Indication: SINUS CONGESTION
     Dosage: 1 TABLET AS NEEDED OFF AND ON, ORAL
     Route: 048
     Dates: end: 20050101

REACTIONS (2)
  - MITRAL VALVE PROLAPSE [None]
  - PALPITATIONS [None]
